FAERS Safety Report 4316207-8 (Version None)
Quarter: 2004Q1

REPORT INFORMATION
  Report Type: 
  Country: None (occurrence: None)
  Receive Date: 20040312
  Receipt Date: 20040302
  Transmission Date: 20041129
  Serious: Yes (Hospitalization)
  Sender: FDA-Public Use
  Company Number: JP-GLAXOSMITHKLINE-B0325138A

PATIENT
  Sex: Female

DRUGS (1)
  1. SAWACILLIN [Suspect]
     Route: 048
     Dates: start: 20040126, end: 20040127

REACTIONS (2)
  - DRUG ERUPTION [None]
  - DRUG INEFFECTIVE [None]
